FAERS Safety Report 4848543-0 (Version None)
Quarter: 2005Q4

REPORT INFORMATION
  Report Type: 
  Country: None (occurrence: None)
  Receive Date: 20051206
  Receipt Date: 20051116
  Transmission Date: 20060501
  Serious: Yes (Other)
  Sender: FDA-Public Use
  Company Number: US200511002852

PATIENT
  Age: 25 Year
  Sex: Male

DRUGS (1)
  1. ZYPREXA [Suspect]
     Dosage: 15 MG, TABLET, ORAL
     Route: 048
     Dates: start: 20051024

REACTIONS (2)
  - DRUG DOSE OMISSION [None]
  - SEDATION [None]
